FAERS Safety Report 9625416 (Version 1)
Quarter: 2013Q4

REPORT INFORMATION
  Report Type: Spontaneous
  Country: US (occurrence: US)
  Receive Date: 20131016
  Receipt Date: 20131016
  Transmission Date: 20140711
  Serious: No
  Sender: FDA-Public Use
  Company Number: US-PFIZER INC-2013296288

PATIENT
  Age: 55 Year
  Sex: Female
  Weight: 61.2 kg

DRUGS (2)
  1. EFFEXOR XR [Suspect]
     Indication: PREMENSTRUAL SYNDROME
     Dosage: 75 MG, DAILY
     Dates: end: 2013
  2. EFFEXOR XR [Suspect]
     Indication: DEPRESSION

REACTIONS (2)
  - Off label use [Unknown]
  - Depression [Not Recovered/Not Resolved]
